FAERS Safety Report 12426027 (Version 1)
Quarter: 2016Q2

REPORT INFORMATION
  Report Type: Report from Study
  Country: JP (occurrence: JP)
  Receive Date: 20160601
  Receipt Date: 20160601
  Transmission Date: 20160815
  Serious: Yes (Hospitalization)
  Sender: FDA-Public Use
  Company Number: JP-MYLANLABS-2016M1022487

PATIENT

DRUGS (2)
  1. CLOTIAZEPAM [Suspect]
     Active Substance: CLOTIAZEPAM
     Indication: BEHAVIOURAL AND PSYCHIATRIC SYMPTOMS OF DEMENTIA
     Route: 065
  2. TRIAZOLAM. [Suspect]
     Active Substance: TRIAZOLAM
     Indication: BEHAVIOURAL AND PSYCHIATRIC SYMPTOMS OF DEMENTIA
     Route: 065

REACTIONS (3)
  - Decubitus ulcer [Recovered/Resolved]
  - Muscle injury [Unknown]
  - Akinesia [Recovered/Resolved]
